FAERS Safety Report 13521470 (Version 1)
Quarter: 2017Q2

REPORT INFORMATION
  Report Type: Spontaneous
  Country: US (occurrence: US)
  Receive Date: 20170505
  Receipt Date: 20170505
  Transmission Date: 20170830
  Serious: Yes (Hospitalization, Disabling, Other)
  Sender: FDA-Public Use
  Company Number: None

PATIENT
  Age: 59 Year
  Sex: Female
  Weight: 62.55 kg

DRUGS (5)
  1. HYDROXYCHLOROQUINE [Suspect]
     Active Substance: HYDROXYCHLOROQUINE
     Indication: PAIN
     Dosage: ?          QUANTITY:60 TABLET(S);?
     Route: 048
     Dates: start: 20160613, end: 20160616
  2. PROBIOTIC [Concomitant]
     Active Substance: PROBIOTICS NOS
  3. HYDROXYCHLOROQUINE [Suspect]
     Active Substance: HYDROXYCHLOROQUINE
     Indication: RASH
     Dosage: ?          QUANTITY:60 TABLET(S);?
     Route: 048
     Dates: start: 20160613, end: 20160616
  4. HYDROXYCHLOROQUINE [Suspect]
     Active Substance: HYDROXYCHLOROQUINE
     Indication: BLISTER
     Dosage: ?          QUANTITY:60 TABLET(S);?
     Route: 048
     Dates: start: 20160613, end: 20160616
  5. ALOE [Concomitant]
     Active Substance: ALOE

REACTIONS (10)
  - Movement disorder [None]
  - Muscle disorder [None]
  - Pain [None]
  - Porphyria [None]
  - Skin disorder [None]
  - Prescribed overdose [None]
  - Cardiac disorder [None]
  - Vomiting [None]
  - Dyspnoea [None]
  - Skin irritation [None]

NARRATIVE: CASE EVENT DATE: 20160613
